FAERS Safety Report 6363858-5 (Version None)
Quarter: 2009Q3

REPORT INFORMATION
  Report Type: 
  Country: None (occurrence: None)
  Receive Date: 20090919
  Receipt Date: 20090707
  Transmission Date: 20100115
  Serious: No
  Sender: FDA-Public Use
  Company Number: US-ABBOTT-09P-163-0584434-00

PATIENT
  Sex: Male
  Weight: 113.95 kg

DRUGS (4)
  1. HUMIRA [Suspect]
     Indication: CROHN'S DISEASE
     Dates: start: 20090201
  2. HUMIRA [Suspect]
     Route: 058
     Dates: start: 20080101, end: 20090101
  3. LIALDA [Concomitant]
     Indication: CROHN'S DISEASE
     Route: 048
  4. AZASANE [Concomitant]
     Indication: CROHN'S DISEASE
     Route: 048

REACTIONS (1)
  - DRUG DOSE OMISSION [None]
